FAERS Safety Report 9725237 (Version 1)
Quarter: 2013Q4

REPORT INFORMATION
  Report Type: Spontaneous
  Country: US (occurrence: None)
  Receive Date: 20131202
  Receipt Date: 20131202
  Transmission Date: 20140711
  Serious: No
  Sender: FDA-Public Use
  Company Number: None

PATIENT
  Age: 33 Year
  Sex: Female
  Weight: 70.76 kg

DRUGS (1)
  1. SMZ/TMP DS [Suspect]
     Indication: URINARY TRACT INFECTION
     Dosage: 1 TABLET, TWICE DAILY, TAKEN BY MOUTH
     Dates: start: 20131121, end: 20131201

REACTIONS (7)
  - Chest pain [None]
  - Heart rate irregular [None]
  - Headache [None]
  - Tension [None]
  - Musculoskeletal pain [None]
  - Arthralgia [None]
  - Arthralgia [None]
